FAERS Safety Report 8591120-9 (Version None)
Quarter: 2012Q3

REPORT INFORMATION
  Report Type: 
  Country: None (occurrence: None)
  Receive Date: 20120813
  Receipt Date: 20120807
  Transmission Date: 20120928
  Serious: No
  Sender: FDA-Public Use
  Company Number: US-PFIZER INC-2012193642

PATIENT
  Age: 76 Year
  Sex: Male
  Weight: 86.2 kg

DRUGS (5)
  1. ASPIRIN [Concomitant]
     Indication: ANTIPLATELET THERAPY
     Dosage: 81 MG, DAILY
  2. LIPITOR [Suspect]
     Indication: HYPERCHOLESTEROLAEMIA
     Dosage: 20 MG, DAILY
     Route: 048
  3. SYNTHROID [Concomitant]
     Indication: THYROID FUNCTION TEST ABNORMAL
     Dosage: 0.15 MG, DAILY
  4. LIPITOR [Suspect]
     Dosage: 80 MG, DAILY
     Route: 048
     Dates: end: 20120101
  5. ATORVASTATIN CALCIUM [Suspect]
     Indication: HYPERCHOLESTEROLAEMIA
     Dosage: 80 MG, DAILY
     Route: 048
     Dates: start: 20120101, end: 20120801

REACTIONS (4)
  - MYALGIA [None]
  - DYSGEUSIA [None]
  - BLOOD CHOLESTEROL INCREASED [None]
  - DYSPEPSIA [None]
